FAERS Safety Report 9113190 (Version 1)
Quarter: 2013Q1

REPORT INFORMATION
  Report Type: Report from Study
  Country: FR (occurrence: FR)
  Receive Date: 20130211
  Receipt Date: 20130211
  Transmission Date: 20140127
  Serious: Yes (Hospitalization)
  Sender: FDA-Public Use
  Company Number: FR-ROCHE-1186888

PATIENT
  Age: 50 Year
  Sex: Male

DRUGS (2)
  1. BEVACIZUMAB [Suspect]
     Indication: RENAL CANCER
     Route: 065
     Dates: start: 20110421, end: 20111104
  2. PAZOPANIB [Suspect]
     Indication: RENAL CANCER
     Route: 065
     Dates: start: 20110407, end: 20111115

REACTIONS (1)
  - Pancreatitis acute [Not Recovered/Not Resolved]
